FAERS Safety Report 9866697 (Version 1)
Quarter: 2014Q1

REPORT INFORMATION
  Report Type: Spontaneous
  Country: US (occurrence: US)
  Receive Date: 20140204
  Receipt Date: 20140204
  Transmission Date: 20141002
  Serious: No
  Sender: FDA-Public Use
  Company Number: US-BIOGENIDEC-2014BI008741

PATIENT
  Age: 44 Year
  Sex: Female

DRUGS (1)
  1. TECFIDERA [Suspect]
     Indication: MULTIPLE SCLEROSIS
     Route: 048
     Dates: start: 20140117

REACTIONS (6)
  - Fatigue [Unknown]
  - Dry throat [Unknown]
  - Flushing [Unknown]
  - Rash papular [Unknown]
  - Nausea [Unknown]
  - Diarrhoea [Unknown]
